FAERS Safety Report 16811635 (Version 1)
Quarter: 2019Q3

REPORT INFORMATION
  Report Type: Report from Study
  Country: MX (occurrence: MX)
  Receive Date: 20190916
  Receipt Date: 20190916
  Transmission Date: 20191005
  Serious: Yes (Hospitalization)
  Sender: FDA-Public Use
  Company Number: MX-UCBSA-2019038568

PATIENT
  Sex: Male
  Weight: 68 kg

DRUGS (3)
  1. LACOSAMIDE. [Suspect]
     Active Substance: LACOSAMIDE
     Indication: EPILEPSY
     Dosage: UNK
  2. EPIVAL [Concomitant]
     Active Substance: DIVALPROEX SODIUM
     Indication: PRODUCT USED FOR UNKNOWN INDICATION
  3. LACOSAMIDE. [Suspect]
     Active Substance: LACOSAMIDE
     Dosage: 100 MILLIGRAM, ONCE DAILY (QD)
     Route: 048

REACTIONS (4)
  - Off label use [Unknown]
  - Accident [Recovered/Resolved]
  - Noninfective encephalitis [Recovered/Resolved]
  - Seizure [Recovered/Resolved]

NARRATIVE: CASE EVENT DATE: 2011
